FAERS Safety Report 9809163 (Version 1)
Quarter: 2014Q1

REPORT INFORMATION
  Report Type: Spontaneous
  Country: US (occurrence: US)
  Receive Date: 20140110
  Receipt Date: 20140110
  Transmission Date: 20141002
  Serious: Yes (Death)
  Sender: FDA-Public Use
  Company Number: 2014SP000052

PATIENT
  Age: 58 Year
  Sex: Female

DRUGS (2)
  1. LUNESTA [Suspect]
     Route: 048
  2. ACETAMINOPHEN W/ASPIRIN/CAFFEINE [Suspect]

REACTIONS (1)
  - Completed suicide [Fatal]
